FAERS Safety Report 23593487 (Version 2)
Quarter: 2025Q3

REPORT INFORMATION
  Report Type: Spontaneous
  Country: EU (occurrence: EU)
  Receive Date: 20240304
  Receipt Date: 20250926
  Transmission Date: 20251020
  Serious: Yes (Hospitalization)
  Sender: ROCHE
  Company Number: None

PATIENT
  Age: 34 Year
  Sex: Male

DRUGS (1)
  1. OCREVUS [Suspect]
     Active Substance: OCRELIZUMAB
     Indication: Multiple sclerosis
     Route: 042
     Dates: start: 201703, end: 20240126

REACTIONS (9)
  - Neurological infection [Unknown]
  - Headache [Unknown]
  - Movement disorder [Unknown]
  - Ataxia [Unknown]
  - Dizziness [Unknown]
  - Meningitis aseptic [Not Recovered/Not Resolved]
  - Apathy [Unknown]
  - Encephalitis autoimmune [Not Recovered/Not Resolved]
  - Pulmonary embolism [Not Recovered/Not Resolved]

NARRATIVE: CASE EVENT DATE: 20230101
